FAERS Safety Report 18025223 (Version 3)
Quarter: 2020Q4

REPORT INFORMATION
  Report Type: Spontaneous
  Country: CO (occurrence: CO)
  Receive Date: 20200715
  Receipt Date: 20201027
  Transmission Date: 20210113
  Serious: Yes (Other)
  Sender: FDA-Public Use
  Company Number: CO-PFIZER INC-2020269673

PATIENT
  Age: 64 Year
  Sex: Male

DRUGS (1)
  1. SUTENT [Suspect]
     Active Substance: SUNITINIB MALATE
     Indication: RENAL CANCER METASTATIC
     Dosage: 50 MG, DAILY (2X1 SCHEME)
     Route: 048
     Dates: start: 201806, end: 202005

REACTIONS (7)
  - Eye swelling [Recovered/Resolved]
  - Exophthalmos [Recovered/Resolved]
  - Neoplasm progression [Unknown]
  - Somnolence [Unknown]
  - Epistaxis [Recovered/Resolved]
  - Asthenia [Unknown]
  - Headache [Unknown]

NARRATIVE: CASE EVENT DATE: 202005
